FAERS Safety Report 22211769 (Version 3)
Quarter: 2023Q2

REPORT INFORMATION
  Report Type: Spontaneous
  Country: FI (occurrence: FI)
  Receive Date: 20230414
  Receipt Date: 20230619
  Transmission Date: 20230722
  Serious: Yes (Hospitalization, Other)
  Sender: FDA-Public Use
  Company Number: FI-TEVA-2023-FI-2876780

PATIENT
  Age: 41 Year
  Sex: Female

DRUGS (3)
  1. COPAXONE [Suspect]
     Active Substance: GLATIRAMER ACETATE
     Indication: Multiple sclerosis
     Dosage: 20 MG/ML
     Route: 065
  2. COPAXONE [Suspect]
     Active Substance: GLATIRAMER ACETATE
     Dosage: 40 MG/ML.
     Dates: end: 20190725
  3. COPAXONE [Suspect]
     Active Substance: GLATIRAMER ACETATE
     Dosage: 40 MG/ML
     Dates: start: 202004

REACTIONS (10)
  - Iron deficiency [Not Recovered/Not Resolved]
  - Arrhythmia [Recovered/Resolved]
  - Multiple sclerosis [Recovered/Resolved]
  - Serum ferritin decreased [Not Recovered/Not Resolved]
  - Gait disturbance [Recovered/Resolved]
  - Therapy change [Unknown]
  - Maternal exposure during pregnancy [Unknown]
  - Lactation insufficiency [Unknown]
  - Live birth [Unknown]
  - Drug ineffective [Unknown]

NARRATIVE: CASE EVENT DATE: 20190626
